FAERS Safety Report 5274535-6 (Version None)
Quarter: 2007Q1

REPORT INFORMATION
  Report Type: 
  Country: None (occurrence: None)
  Receive Date: 20070320
  Receipt Date: 20070306
  Transmission Date: 20070707
  Serious: Yes (Other)
  Sender: FDA-Public Use
  Company Number: 8022581

PATIENT
  Sex: Female

DRUGS (2)
  1. EQUASYM [Suspect]
  2. EQUASYM [Suspect]
     Dosage: 30 DF ONCE
     Dates: start: 20070304, end: 20070304

REACTIONS (1)
  - OVERDOSE [None]
